FAERS Safety Report 20485611 (Version 1)
Quarter: 2022Q1

REPORT INFORMATION
  Report Type: Spontaneous
  Country: US (occurrence: US)
  Receive Date: 20220217
  Receipt Date: 20220217
  Transmission Date: 20220423
  Serious: Yes (Hospitalization, Other)
  Sender: FDA-Public Use
  Company Number: US-AMGEN-USASP2022021839

PATIENT
  Age: 74 Year
  Sex: Female

DRUGS (3)
  1. NPLATE [Suspect]
     Active Substance: ROMIPLOSTIM
     Indication: Immune thrombocytopenia
     Dosage: UNK
     Route: 065
     Dates: start: 202112
  2. COVID-19 VACCINE [Concomitant]
     Dosage: UNK
     Dates: start: 202105
  3. COVID-19 VACCINE [Concomitant]
     Dosage: UNK
     Dates: start: 202201

REACTIONS (4)
  - Aortic stenosis [Unknown]
  - Platelet count decreased [Unknown]
  - Platelet aggregation increased [Unknown]
  - Off label use [Unknown]

NARRATIVE: CASE EVENT DATE: 20211207
